FAERS Safety Report 7948541-4 (Version None)
Quarter: 2011Q4

REPORT INFORMATION
  Report Type: 
  Country: None (occurrence: None)
  Receive Date: 20111130
  Receipt Date: 20111118
  Transmission Date: 20120403
  Serious: Yes (Hospitalization, Disabling)
  Sender: FDA-Public Use
  Company Number: FR-SANOFI-AVENTIS-2011SA075997

PATIENT
  Age: 54 Year
  Sex: Male

DRUGS (3)
  1. RIFAMPIN AND ISONIAZID [Suspect]
     Indication: PULMONARY TUBERCULOSIS
     Dosage: DOSE:3 UNIT(S)
     Route: 048
     Dates: start: 20110606
  2. RIFATER [Suspect]
     Indication: PULMONARY TUBERCULOSIS
     Dosage: DOSE:6 UNIT(S)
     Route: 048
     Dates: start: 20110406, end: 20110606
  3. MYAMBUTOL [Concomitant]
     Indication: PULMONARY TUBERCULOSIS
     Route: 065
     Dates: start: 20110406, end: 20110606

REACTIONS (1)
  - PERIARTHRITIS [None]
